FAERS Safety Report 4900806-6 (Version None)
Quarter: 2006Q1

REPORT INFORMATION
  Report Type: 
  Country: None (occurrence: None)
  Receive Date: 20060201
  Receipt Date: 20060117
  Transmission Date: 20060701
  Serious: Yes (Hospitalization)
  Sender: FDA-Public Use
  Company Number: PAR_0477_2006

PATIENT
  Age: 44 Year
  Sex: Female

DRUGS (3)
  1. LISINOPRIL [Suspect]
     Indication: HYPERTENSION
     Dosage: 10 MG QDAY
     Dates: start: 20040801, end: 20041005
  2. VALSARTAN [Suspect]
     Indication: HYPERTENSION
     Dosage: 80 MG QDAY
     Dates: start: 20040801, end: 20041005
  3. QUINAPRIL HCL [Suspect]
     Indication: HYPERTENSION
     Dosage: 20 MG QDAY

REACTIONS (6)
  - ANAEMIA [None]
  - ANGIONEUROTIC OEDEMA [None]
  - ASCITES [None]
  - GASTROINTESTINAL DISORDER [None]
  - NODULE [None]
  - PERITONITIS [None]
